FAERS Safety Report 9725290 (Version 1)
Quarter: 2013Q4

REPORT INFORMATION
  Report Type: Spontaneous
  Country: US (occurrence: None)
  Receive Date: 20131202
  Receipt Date: 20131202
  Transmission Date: 20140711
  Serious: Yes (Other)
  Sender: FDA-Public Use
  Company Number: None

PATIENT
  Age: 28 Year
  Sex: Female
  Weight: 77.11 kg

DRUGS (1)
  1. LIDOCAINE [Suspect]
     Indication: ANAESTHESIA PROCEDURE
     Dosage: APPLIED TO SURFACE, USUALLY THE SKIN
     Route: 061

REACTIONS (11)
  - Blood pressure increased [None]
  - Restlessness [None]
  - Feeling jittery [None]
  - Tremor [None]
  - Dyskinesia [None]
  - Muscle twitching [None]
  - Disorientation [None]
  - Feeling cold [None]
  - Nausea [None]
  - Body temperature decreased [None]
  - Heart rate increased [None]
